FAERS Safety Report 6434685-5 (Version None)
Quarter: 2009Q4

REPORT INFORMATION
  Report Type: 
  Country: None (occurrence: None)
  Receive Date: 20091109
  Receipt Date: 20091109
  Transmission Date: 20100525
  Serious: Yes (Life-Threatening)
  Sender: FDA-Public Use
  Company Number: None

PATIENT
  Age: 42 Year
  Sex: Female
  Weight: 81.6475 kg

DRUGS (2)
  1. NUVARING [Suspect]
     Indication: CONTRACEPTION
     Dosage: INSERT 1 RING FOR 3 WEEKS VAG
     Route: 067
     Dates: start: 20090925, end: 20091013
  2. NUVARING [Suspect]
     Indication: UTERINE LEIOMYOMA
     Dosage: INSERT 1 RING FOR 3 WEEKS VAG
     Route: 067
     Dates: start: 20090925, end: 20091013

REACTIONS (4)
  - DRUG HYPERSENSITIVITY [None]
  - HAEMORRHAGE [None]
  - HEADACHE [None]
  - NO THERAPEUTIC RESPONSE [None]
